FAERS Safety Report 23365799 (Version 1)
Quarter: 2024Q1

REPORT INFORMATION
  Report Type: Spontaneous
  Country: US (occurrence: US)
  Receive Date: 20240104
  Receipt Date: 20240104
  Transmission Date: 20240409
  Serious: No
  Sender: FDA-Public Use
  Company Number: US-BAUSCH-BL-2023-019444

PATIENT
  Age: 76 Year
  Sex: Female
  Weight: 65.83 kg

DRUGS (5)
  1. CROMOLYN SODIUM [Suspect]
     Active Substance: CROMOLYN SODIUM
     Indication: Hypersensitivity
     Route: 045
     Dates: start: 20231227, end: 20231227
  2. METOPROLOL [Concomitant]
     Active Substance: METOPROLOL
     Indication: Product used for unknown indication
     Route: 065
  3. LISINOPRIL [Concomitant]
     Active Substance: LISINOPRIL
     Indication: Product used for unknown indication
     Route: 065
  4. XARELTO [Concomitant]
     Active Substance: RIVAROXABAN
     Indication: Product used for unknown indication
     Route: 065
  5. AMLODIPINE [Concomitant]
     Active Substance: AMLODIPINE BESYLATE
     Indication: Product used for unknown indication
     Route: 065

REACTIONS (7)
  - Headache [Recovering/Resolving]
  - Lacrimation increased [Recovering/Resolving]
  - Eye irritation [Recovering/Resolving]
  - Sneezing [Recovering/Resolving]
  - Chest discomfort [Recovering/Resolving]
  - Nasal congestion [Recovering/Resolving]
  - Increased viscosity of upper respiratory secretion [Recovering/Resolving]

NARRATIVE: CASE EVENT DATE: 20231227
